FAERS Safety Report 7106571-9 (Version None)
Quarter: 2010Q4

REPORT INFORMATION
  Report Type: 
  Country: None (occurrence: None)
  Receive Date: 20101116
  Receipt Date: 20101108
  Transmission Date: 20110411
  Serious: Yes (Hospitalization)
  Sender: FDA-Public Use
  Company Number: FR-ABBOTT-10P-056-0684120-00

PATIENT
  Sex: Male

DRUGS (5)
  1. CLARITHROMYCIN [Suspect]
     Indication: LUNG INFECTION
     Route: 048
     Dates: start: 20100909
  2. ANSATIPINE [Suspect]
     Indication: LUNG INFECTION
     Route: 048
     Dates: start: 20100909, end: 20100926
  3. MYAMBUTOL [Suspect]
     Indication: LUNG INFECTION
     Dosage: 1200MG DAILY
     Route: 048
     Dates: start: 20100909
  4. CACIT VITAMINE D3 [Suspect]
     Indication: VITAMIN D DEFICIENCY
     Route: 048
     Dates: start: 20100907
  5. PARACETAMOL [Suspect]
     Indication: PRODUCT USED FOR UNKNOWN INDICATION
     Route: 048

REACTIONS (5)
  - ASPARTATE AMINOTRANSFERASE INCREASED [None]
  - LEUKOPENIA [None]
  - PYREXIA [None]
  - RASH [None]
  - THROMBOCYTOPENIA [None]
